FAERS Safety Report 15905053 (Version 1)
Quarter: 2019Q1

REPORT INFORMATION
  Report Type: Report from Study
  Country: PL (occurrence: PL)
  Receive Date: 20190204
  Receipt Date: 20190204
  Transmission Date: 20190417
  Serious: Yes (Other)
  Sender: FDA-Public Use
  Company Number: PL-ACCORD-104960

PATIENT

DRUGS (2)
  1. GINSENG NOS [Interacting]
     Active Substance: HERBALS
     Indication: NUTRITIONAL SUPPLEMENTATION
  2. CLONAZEPAM. [Suspect]
     Active Substance: CLONAZEPAM
     Indication: ANTIDEPRESSANT THERAPY

REACTIONS (2)
  - Psychotic disorder [Unknown]
  - Drug interaction [Unknown]
